FAERS Safety Report 8504669-1 (Version None)
Quarter: 2012Q3

REPORT INFORMATION
  Report Type: 
  Country: None (occurrence: None)
  Receive Date: 20120711
  Receipt Date: 20120706
  Transmission Date: 20120928
  Serious: Yes (Other)
  Sender: FDA-Public Use
  Company Number: DE-ROCHE-1086175

PATIENT
  Age: 58 Year
  Sex: Male

DRUGS (2)
  1. MABTHERA [Suspect]
     Indication: RHEUMATOID ARTHRITIS
     Dosage: , DATE OF LAST DOSE PRIOR TO EVENT: 27/MAR/2012
     Route: 042
  2. TNF [Suspect]
     Indication: RHEUMATOID ARTHRITIS
     Dosage: NAME: TNF ANTIBODY
     Route: 065

REACTIONS (1)
  - METASTATIC RENAL CELL CARCINOMA [None]
